FAERS Safety Report 11704378 (Version 2)
Quarter: 2015Q4

REPORT INFORMATION
  Report Type: Spontaneous
  Country: US (occurrence: US)
  Receive Date: 20151106
  Receipt Date: 20151116
  Transmission Date: 20160304
  Serious: No
  Sender: FDA-Public Use
  Company Number: US-BIOGENIDEC-2015BI147375

PATIENT
  Age: 42 Year
  Sex: Female
  Weight: 94 kg

DRUGS (13)
  1. CITALOPRAM [Concomitant]
     Active Substance: CITALOPRAM HYDROBROMIDE
     Dates: start: 2008
  2. AMPYRA [Concomitant]
     Active Substance: DALFAMPRIDINE
     Indication: GAIT DISTURBANCE
     Route: 048
     Dates: start: 201209
  3. AMPYRA [Concomitant]
     Active Substance: DALFAMPRIDINE
     Indication: COGNITIVE DISORDER
     Route: 048
     Dates: start: 201209
  4. NORTRIPTYLINE HCL [Concomitant]
     Active Substance: NORTRIPTYLINE HYDROCHLORIDE
  5. ZYRTEC [Concomitant]
     Active Substance: CETIRIZINE HYDROCHLORIDE
  6. BETASERON [Concomitant]
     Active Substance: INTERFERON BETA-1B
     Dates: start: 200808
  7. TECFIDERA [Suspect]
     Active Substance: DIMETHYL FUMARATE
     Indication: MULTIPLE SCLEROSIS
     Route: 048
     Dates: start: 201509, end: 201509
  8. SOLU-MEDROL [Concomitant]
     Active Substance: METHYLPREDNISOLONE SODIUM SUCCINATE
     Indication: MULTIPLE SCLEROSIS RELAPSE
  9. AMPYRA [Concomitant]
     Active Substance: DALFAMPRIDINE
     Indication: MULTIPLE SCLEROSIS
     Route: 048
     Dates: start: 201209
  10. TECFIDERA [Suspect]
     Active Substance: DIMETHYL FUMARATE
     Indication: MULTIPLE SCLEROSIS
     Route: 048
     Dates: start: 201509, end: 20151027
  11. FLEXERIL [Concomitant]
     Active Substance: CYCLOBENZAPRINE HYDROCHLORIDE
  12. ARICEPT [Concomitant]
     Active Substance: DONEPEZIL HYDROCHLORIDE
     Dates: start: 20150801
  13. HYDROCHLOROTHIAZIDE. [Concomitant]
     Active Substance: HYDROCHLOROTHIAZIDE

REACTIONS (13)
  - Mobility decreased [Not Recovered/Not Resolved]
  - Constipation [Recovered/Resolved]
  - Burning sensation [Not Recovered/Not Resolved]
  - Bronchitis [Not Recovered/Not Resolved]
  - Flushing [Not Recovered/Not Resolved]
  - Herpes zoster [Unknown]
  - Sinusitis [Unknown]
  - Faeces pale [Unknown]
  - Abdominal distension [Unknown]
  - Diarrhoea [Recovered/Resolved]
  - Depression [Unknown]
  - Asthenia [Unknown]
  - Adverse event [Unknown]

NARRATIVE: CASE EVENT DATE: 201509
